FAERS Safety Report 5449310-X (Version None)
Quarter: 2007Q3

REPORT INFORMATION
  Report Type: 
  Country: None (occurrence: None)
  Receive Date: 20070907
  Receipt Date: 20070829
  Transmission Date: 20080115
  Serious: Yes (Other)
  Sender: FDA-Public Use
  Company Number: GXKR2007GB07493

PATIENT
  Age: 73 Year
  Sex: Male
  Weight: 67.9 kg

DRUGS (5)
  1. LISINOPRIL [Suspect]
     Dosage: 5 MG, ORAL
     Route: 048
     Dates: start: 20070618, end: 20070622
  2. ATENOLOL [Concomitant]
  3. BENDROFLUMETHIAZIDE (BENDROFLUMETHIAZIDE) [Concomitant]
  4. LANSOPRAZOLE [Concomitant]
  5. SIMVASTATIN [Concomitant]

REACTIONS (2)
  - BURNING SENSATION [None]
  - PALPITATIONS [None]
